FAERS Safety Report 14860756 (Version 1)
Quarter: 2018Q2

REPORT INFORMATION
  Report Type: Spontaneous
  Country: IL (occurrence: IL)
  Receive Date: 20180423
  Receipt Date: 20180423
  Transmission Date: 20180711
  Serious: Yes (Disabling)
  Sender: FDA-Public Use
  Company Number: None

PATIENT
  Age: 78 Year
  Sex: Female
  Weight: 55 kg

DRUGS (6)
  1. ALDACTONE [Concomitant]
     Active Substance: SPIRONOLACTONE
  2. LANTOLN [Concomitant]
  3. NIFEDIPINE. [Concomitant]
     Active Substance: NIFEDIPINE
  4. ASPIRIN. [Concomitant]
     Active Substance: ASPIRIN
  5. LANSOPRESOL [Suspect]
     Active Substance: LANSOPRAZOLE
     Indication: DUODENOGASTRIC REFLUX
  6. MAGNOX (MAGNESIUM OXIDE) [Concomitant]

REACTIONS (6)
  - Magnesium deficiency [None]
  - Migraine with aura [None]
  - Muscular weakness [None]
  - Tinnitus [None]
  - Blood pressure increased [None]
  - Muscle spasms [None]

NARRATIVE: CASE EVENT DATE: 20160101
